FAERS Safety Report 5831539-X (Version None)
Quarter: 2008Q3

REPORT INFORMATION
  Report Type: 
  Country: None (occurrence: None)
  Receive Date: 20080730
  Receipt Date: 20080722
  Transmission Date: 20090109
  Serious: Yes (Hospitalization)
  Sender: FDA-Public Use
  Company Number: GXBR2008US01503

PATIENT
  Age: 77 Year
  Sex: Female
  Weight: 79.4 kg

DRUGS (4)
  1. ALPRAZOLAM [Suspect]
     Indication: ANXIETY
     Dosage: 1 MG ONE TO FOUR TIMES DAILY, ORAL; 2 MG, QID, ORAL
     Route: 048
     Dates: start: 20080718
  2. NORVASC [Concomitant]
  3. ASPIRIN [Concomitant]
  4. VITAMINS (NO INGREDIENTS/SUBSTANCES) [Concomitant]

REACTIONS (5)
  - ANXIETY [None]
  - BLOOD PRESSURE INCREASED [None]
  - INSOMNIA [None]
  - MALAISE [None]
  - PHARMACEUTICAL PRODUCT COMPLAINT [None]
